FAERS Safety Report 6181720-8 (Version None)
Quarter: 2009Q2

REPORT INFORMATION
  Report Type: 
  Country: None (occurrence: None)
  Receive Date: 20090423
  Receipt Date: 20090410
  Transmission Date: 20091009
  Serious: Yes (Life-Threatening)
  Sender: FDA-Public Use
  Company Number: THYM-1000983

PATIENT
  Age: 16 Year
  Sex: Male
  Weight: 48 kg

DRUGS (8)
  1. THYMOGLOBULIN [Suspect]
     Indication: STEM CELL TRANSPLANT
     Dosage: 2.5 MG/KG, QD, INTRAVENOUS
     Route: 042
     Dates: start: 20090314, end: 20090317
  2. METHOTREXATE [Suspect]
     Indication: PROPHYLAXIS AGAINST TRANSPLANT REJECTION
     Dosage: 15 MG, QD, 11MG, QD
     Dates: start: 20090319, end: 20090319
  3. METHOTREXATE [Suspect]
     Indication: PROPHYLAXIS AGAINST TRANSPLANT REJECTION
     Dosage: 15 MG, QD, 11MG, QD
     Dates: start: 20090321, end: 20090321
  4. CYCLOPHOSPHAMIDE [Concomitant]
  5. METHYLPREDNISOLONE [Concomitant]
  6. CEFEPIME HYDROCHLORIDE [Concomitant]
  7. SULFAMETOXAZOL MED TRIMETOPRIM (SULFAMETHOXAZOLE, TRIMETHOPRIM) [Concomitant]
  8. ACICLOVIR (ACICLOVIR SODIUM) [Concomitant]

REACTIONS (4)
  - ALANINE AMINOTRANSFERASE INCREASED [None]
  - ASPARTATE AMINOTRANSFERASE INCREASED [None]
  - BLOOD BILIRUBIN INCREASED [None]
  - LIVER DISORDER [None]
